FAERS Safety Report 23893466 (Version 2)
Quarter: 2024Q2

REPORT INFORMATION
  Report Type: Report from Study
  Country: EG (occurrence: EG)
  Receive Date: 20240524
  Receipt Date: 20240625
  Transmission Date: 20240716
  Serious: Yes (Disabling)
  Sender: FDA-Public Use
  Company Number: EG-002147023-NVSC2024EG089389

PATIENT
  Age: 21 Year
  Sex: Male

DRUGS (2)
  1. XOLAIR [Suspect]
     Active Substance: OMALIZUMAB
     Indication: Urticaria
     Dosage: 1 DOSAGE FORM, QMO (FOR 6 MONTHS)
     Route: 058
     Dates: start: 20240324
  2. NEORAL [Suspect]
     Active Substance: CYCLOSPORINE
     Indication: Urticaria
     Dosage: 100 MG IN MORNING AND 50 MG IN EVENING QD
     Route: 065
     Dates: end: 202403

REACTIONS (5)
  - Fatigue [Not Recovered/Not Resolved]
  - Pain [Not Recovered/Not Resolved]
  - Off label use [Unknown]
  - Rash erythematous [Unknown]
  - Drug ineffective [Unknown]

NARRATIVE: CASE EVENT DATE: 20240324
